FAERS Safety Report 5331529-X (Version None)
Quarter: 2007Q2

REPORT INFORMATION
  Report Type: 
  Country: None (occurrence: None)
  Receive Date: 20070522
  Receipt Date: 20070518
  Transmission Date: 20071010
  Serious: Yes (Hospitalization)
  Sender: FDA-Public Use
  Company Number: AU-BOEHRINGER INGELHEIM PHARMACEUTICALS, INC.-2007-BP-06406AU

PATIENT
  Sex: Female

DRUGS (2)
  1. MOBIC [Suspect]
     Indication: OSTEOARTHRITIS
     Route: 048
     Dates: end: 20070422
  2. AVAPRO HCT [Suspect]
     Indication: HYPERTENSION
     Dosage: 300/12.5 MG
     Route: 048
     Dates: end: 20070425

REACTIONS (2)
  - HYPONATRAEMIA [None]
  - RENAL IMPAIRMENT [None]
